FAERS Safety Report 20414768 (Version 1)
Quarter: 2022Q1

REPORT INFORMATION
  Report Type: Spontaneous
  Country: GB (occurrence: None)
  Receive Date: 20220202
  Receipt Date: 20220202
  Transmission Date: 20220424
  Serious: Yes (Other)
  Sender: FDA-Public Use
  Company Number: None

PATIENT
  Age: 82 Year
  Sex: Female

DRUGS (2)
  1. VANCOMYCIN [Suspect]
     Active Substance: VANCOMYCIN
     Indication: Cellulitis
     Dosage: UNKNOWN
     Route: 042
     Dates: start: 20220102, end: 20220104
  2. UNSPECIFIED INGREDIENT [Concomitant]
     Active Substance: UNSPECIFIED INGREDIENT
     Indication: Product used for unknown indication
     Dosage: UNKNOWN
     Route: 065

REACTIONS (6)
  - Blister [Recovering/Resolving]
  - Linear IgA disease [Unknown]
  - Erythema [Unknown]
  - Toxic epidermal necrolysis [Unknown]
  - Skin burning sensation [Unknown]
  - Renal impairment [Unknown]

NARRATIVE: CASE EVENT DATE: 20220102
